FAERS Safety Report 7540334-5 (Version None)
Quarter: 2011Q2

REPORT INFORMATION
  Report Type: 
  Country: None (occurrence: None)
  Receive Date: 20110610
  Receipt Date: 20040709
  Transmission Date: 20111010
  Serious: Yes (Death)
  Sender: FDA-Public Use
  Company Number: PHHO2004US09858

PATIENT
  Sex: Male
  Weight: 73.469 kg

DRUGS (9)
  1. PEPCID [Concomitant]
  2. SEPTRA [Concomitant]
  3. METFORMIN HCL [Concomitant]
  4. AMITRIPTYLINE HYDROCHLORIDE [Concomitant]
  5. AMARYL [Concomitant]
  6. THALIDOMIDE [Concomitant]
     Indication: MULTIPLE MYELOMA
     Dosage: 150 MG, QD
     Route: 048
     Dates: start: 20040428
  7. DEXAMETHASONE [Concomitant]
     Indication: MULTIPLE MYELOMA
     Dosage: 40 MG, QD
     Route: 048
     Dates: start: 20040428
  8. COUMADIN [Concomitant]
  9. ZOMETA [Suspect]
     Dosage: 4 MG, QMO
     Route: 042
     Dates: start: 20040428

REACTIONS (1)
  - DEATH [None]
